FAERS Safety Report 10238200 (Version 5)
Quarter: 2014Q3

REPORT INFORMATION
  Report Type: Spontaneous
  Country: US (occurrence: US)
  Receive Date: 20140616
  Receipt Date: 20140917
  Transmission Date: 20150326
  Serious: Yes (Disabling, Other)
  Sender: FDA-Public Use
  Company Number: US-JNJFOC-20140602326

PATIENT
  Age: 50 Year
  Sex: Female
  Weight: 63.5 kg

DRUGS (6)
  1. RISPERDAL [Suspect]
     Active Substance: RISPERIDONE
     Indication: DEPRESSION
     Route: 048
     Dates: start: 200904, end: 20111105
  2. MULTIVITAMINS [Concomitant]
     Active Substance: VITAMINS
     Route: 065
  3. RISPERDAL [Suspect]
     Active Substance: RISPERIDONE
     Indication: ANXIETY
     Route: 048
     Dates: start: 200904, end: 20111105
  4. ALOE VERA [Concomitant]
     Active Substance: ALOE VERA LEAF
     Route: 065
  5. RISPERDAL [Suspect]
     Active Substance: RISPERIDONE
     Indication: HALLUCINATION
     Route: 048
     Dates: start: 200904, end: 20111105
  6. BIOTIN [Concomitant]
     Active Substance: BIOTIN
     Route: 065

REACTIONS (10)
  - Tongue biting [Not Recovered/Not Resolved]
  - Bruxism [Not Recovered/Not Resolved]
  - Muscular weakness [Not Recovered/Not Resolved]
  - Muscle atrophy [Not Recovered/Not Resolved]
  - Muscle atrophy [Recovering/Resolving]
  - Dizziness [Recovering/Resolving]
  - Tardive dyskinesia [Not Recovered/Not Resolved]
  - Tinnitus [Recovering/Resolving]
  - Abnormal loss of weight [Recovered/Resolved]
  - Deafness [Not Recovered/Not Resolved]

NARRATIVE: CASE EVENT DATE: 201006
